FAERS Safety Report 9390773 (Version 3)
Quarter: 2014Q3

REPORT INFORMATION
  Report Type: Spontaneous
  Country: US (occurrence: US)
  Receive Date: 20130709
  Receipt Date: 20140829
  Transmission Date: 20150326
  Serious: Yes (Hospitalization)
  Sender: FDA-Public Use
  Company Number: US-BAYER-2013-080650

PATIENT
  Age: 23 Year
  Sex: Female
  Weight: 54 kg

DRUGS (5)
  1. GLYCOLAX [Concomitant]
     Active Substance: POLYETHYLENE GLYCOL 3350
     Indication: CONSTIPATION
     Dosage: UNK
     Route: 048
     Dates: start: 20091002
  2. XANAX [Concomitant]
     Active Substance: ALPRAZOLAM
     Dosage: 0.25 MG, PRN
     Route: 048
  3. BISACODYL. [Concomitant]
     Active Substance: BISACODYL
     Dosage: 5 MG, ONCE A DAY
     Route: 048
  4. LEXAPRO [Concomitant]
     Active Substance: ESCITALOPRAM OXALATE
     Dosage: 10 MG, QD
     Route: 048
  5. MIRENA [Suspect]
     Active Substance: LEVONORGESTREL
     Indication: CONTRACEPTION
     Dosage: 20 MCG/24HR, CONT
     Route: 015
     Dates: start: 20090526, end: 20091128

REACTIONS (11)
  - Dyspepsia [None]
  - Pain [None]
  - Weight decreased [None]
  - Post procedural discomfort [None]
  - Medical device pain [None]
  - Infection [None]
  - Abdominal pain lower [None]
  - Uterine perforation [None]
  - Genital haemorrhage [None]
  - Metrorrhagia [None]
  - Injury [None]

NARRATIVE: CASE EVENT DATE: 200910
